FAERS Safety Report 6212182-X (Version None)
Quarter: 2009Q2

REPORT INFORMATION
  Report Type: 
  Country: None (occurrence: None)
  Receive Date: 20090602
  Receipt Date: 20090522
  Transmission Date: 20091009
  Serious: Yes (Other)
  Sender: FDA-Public Use
  Company Number: US-SANOFI-SYNTHELABO-A03200902244

PATIENT
  Age: 66 Year
  Sex: Female

DRUGS (2)
  1. PLAVIX [Suspect]
     Indication: STENT PLACEMENT
     Route: 048
  2. PREVACID [Interacting]
     Indication: DRUG USE FOR UNKNOWN INDICATION
     Dosage: UNK
     Route: 048
     Dates: end: 20090101

REACTIONS (5)
  - BLOOD PRESSURE DECREASED [None]
  - DRUG INTERACTION [None]
  - HEART RATE INCREASED [None]
  - MYOCARDIAL INFARCTION [None]
  - STENT OCCLUSION [None]
